FAERS Safety Report 11071914 (Version 5)
Quarter: 2019Q1

REPORT INFORMATION
  Report Type: Spontaneous
  Country: DE (occurrence: DE)
  Receive Date: 20150428
  Receipt Date: 20190316
  Transmission Date: 20190417
  Serious: Yes (Hospitalization, Other)
  Sender: FDA-Public Use
  Company Number: DE-AUROBINDO-AUR-APL-2015-03721

PATIENT

DRUGS (8)
  1. VASOPRESSIN. [Concomitant]
     Active Substance: VASOPRESSIN
     Indication: HYPOVOLAEMIA
     Dosage: UNK
     Route: 065
  2. METOPROLOL. [Concomitant]
     Active Substance: METOPROLOL
     Indication: HYPERTENSION
     Dosage: UNK
     Route: 065
  3. SIMVASTATIN. [Concomitant]
     Active Substance: SIMVASTATIN
     Indication: PRODUCT USED FOR UNKNOWN INDICATION
     Dosage: UNK
     Route: 065
  4. SIMVASTATIN. [Concomitant]
     Active Substance: SIMVASTATIN
     Dosage: 10 MG, QD (ONCE IN EVENING)
     Route: 065
  5. METOPROLOL. [Concomitant]
     Active Substance: METOPROLOL
     Dosage: 47.5 MG, QD (ONCE IN MORNING )
     Route: 065
  6. METFORMIN [Suspect]
     Active Substance: METFORMIN HYDROCHLORIDE
     Indication: TYPE 2 DIABETES MELLITUS
     Dosage: 1000 MG, BID (ONCE IN MORNING AND IN EVENING)
     Route: 065
     Dates: start: 201202
  7. METOPROLOL. [Concomitant]
     Active Substance: METOPROLOL
     Dosage: 47.5 MG, QD (ONCE IN MORNING )
     Route: 065
  8. VASOPRESSIN. [Concomitant]
     Active Substance: VASOPRESSIN
     Dosage: 0.81 UG/KG, BODY MASS/MIN ()
     Route: 065

REACTIONS (26)
  - Hyperkalaemia [Recovered/Resolved]
  - Hypothermia [Recovered/Resolved]
  - Aspiration pleural cavity [Recovered/Resolved]
  - Hypotonia [Recovered/Resolved]
  - Blood lactic acid increased [Recovered/Resolved]
  - Ascites [Recovered/Resolved]
  - Rectal haemorrhage [Recovered/Resolved]
  - Tachypnoea [Recovered/Resolved]
  - Hypovolaemia [Recovered/Resolved]
  - Lactic acidosis [Recovering/Resolving]
  - Hyponatraemia [Recovered/Resolved]
  - Blood creatinine increased [Recovered/Resolved]
  - Ventricular tachycardia [Recovered/Resolved]
  - Pleural effusion [Recovered/Resolved]
  - Acute kidney injury [Unknown]
  - Intestinal ischaemia [Recovered/Resolved]
  - General physical health deterioration [Recovered/Resolved]
  - Blood urea increased [Recovered/Resolved]
  - Hypotension [Recovered/Resolved]
  - Metabolic acidosis [Recovered/Resolved]
  - Malaise [Unknown]
  - Bradycardia [Recovered/Resolved]
  - Pulmonary oedema [Recovered/Resolved]
  - Polyneuropathy [Unknown]
  - Drug level increased [Recovered/Resolved]
  - Dehydration [Unknown]
